FAERS Safety Report 9381853 (Version 1)
Quarter: 2013Q3

REPORT INFORMATION
  Report Type: Spontaneous
  Country: DE (occurrence: DE)
  Receive Date: 20130703
  Receipt Date: 20130703
  Transmission Date: 20140515
  Serious: Yes (Other)
  Sender: FDA-Public Use
  Company Number: DE-PFIZER INC-2013195170

PATIENT
  Sex: Male

DRUGS (7)
  1. LYRICA [Suspect]
     Dosage: 25 MG
     Dates: start: 20130626, end: 20130626
  2. NEBIVOLOL [Concomitant]
     Dosage: 2.5 MG, 2X/DAY (MORNING/EVENING)
  3. ATACAND [Concomitant]
     Dosage: 2 MG, 2X/DAY (MORNING/EVENING)
  4. AMLODIPINE [Concomitant]
     Dosage: 2.5 MG, 1X/DAY (AT NOON)
  5. CLOPIDOGREL [Concomitant]
     Dosage: 75 MG, 1X/DAY (AT NOON)
  6. TAMSULOSIN [Concomitant]
     Dosage: 0.4 MG, 1X/DAY (AT NOON)
  7. KELTICAN N [Concomitant]

REACTIONS (4)
  - Pulse absent [Unknown]
  - Chest pain [Unknown]
  - Ventricular extrasystoles [Unknown]
  - Hypertension [Unknown]
